FAERS Safety Report 25432039 (Version 1)
Quarter: 2025Q2

REPORT INFORMATION
  Report Type: Spontaneous
  Country: GB (occurrence: GB)
  Receive Date: 20250613
  Receipt Date: 20250613
  Transmission Date: 20250716
  Serious: Yes (Other)
  Sender: NOVO NORDISK
  Company Number: None

PATIENT
  Sex: Male
  Weight: 135 kg

DRUGS (2)
  1. WEGOVY [Suspect]
     Active Substance: SEMAGLUTIDE
     Indication: Obesity
     Dosage: 2.4 MG, QD
     Dates: start: 20241022, end: 20250521
  2. BECLOMETHASONE DIPROPIONATE\FORMOTEROL FUMARATE [Concomitant]
     Active Substance: BECLOMETHASONE DIPROPIONATE\FORMOTEROL FUMARATE
     Indication: Asthma

REACTIONS (5)
  - Mental disorder [Recovering/Resolving]
  - Suicidal ideation [Unknown]
  - Chest pain [Unknown]
  - Anxiety [Unknown]
  - Insomnia [Unknown]

NARRATIVE: CASE EVENT DATE: 20250514
